FAERS Safety Report 11888557 (Version 1)
Quarter: 2016Q1

REPORT INFORMATION
  Report Type: Spontaneous
  Country: BE (occurrence: BE)
  Receive Date: 20160105
  Receipt Date: 20160105
  Transmission Date: 20160526
  Serious: Yes (Other)
  Sender: FDA-Public Use
  Company Number: BE-TEVA-622894ISR

PATIENT
  Sex: Male

DRUGS (9)
  1. AMLODIPINE [Concomitant]
     Active Substance: AMLODIPINE BESYLATE
     Dosage: 5 MG/DAY
     Route: 064
  2. BUPIVACAINE [Concomitant]
     Active Substance: BUPIVACAINE
     Route: 064
  3. TICAGRELOR [Suspect]
     Active Substance: TICAGRELOR
     Route: 064
  4. OXYTOCIN. [Concomitant]
     Active Substance: OXYTOCIN
     Route: 064
  5. ASPIRIN. [Concomitant]
     Active Substance: ASPIRIN
     Dosage: 80 MILLIGRAM DAILY;
     Route: 064
  6. SUFENTANIL [Concomitant]
     Active Substance: SUFENTANIL
     Route: 064
  7. BISOPROLOL [Suspect]
     Active Substance: BISOPROLOL
     Dosage: 5 MILLIGRAM DAILY;
     Route: 064
  8. PREDNISOLONE. [Concomitant]
     Active Substance: PREDNISOLONE
     Dosage: 8 MILLIGRAM DAILY;
     Route: 064
  9. PREPIDIL [Concomitant]
     Active Substance: DINOPROSTONE
     Route: 064

REACTIONS (2)
  - Foetal exposure during pregnancy [Unknown]
  - Foetal growth restriction [Unknown]
